FAERS Safety Report 22664997 (Version 1)
Quarter: 2023Q2

REPORT INFORMATION
  Report Type: Spontaneous
  Country: US (occurrence: None)
  Receive Date: 20230630
  Receipt Date: 20230630
  Transmission Date: 20230721
  Serious: Yes (Other)
  Sender: FDA-Public Use
  Company Number: None

PATIENT
  Age: 60 Year
  Sex: Female
  Weight: 98.1 kg

DRUGS (2)
  1. FELBAMATE [Suspect]
     Active Substance: FELBAMATE
     Indication: Seizure
     Dosage: OTHER QUANTITY : 3 TABLET(S);?OTHER FREQUENCY : 3 QAM, 2NOON, 2PM;?
     Route: 048
     Dates: start: 20230310
  2. VITAMINS [Concomitant]
     Active Substance: VITAMINS

REACTIONS (5)
  - Somnolence [None]
  - Fatigue [None]
  - Gait disturbance [None]
  - Nausea [None]
  - Weight decreased [None]

NARRATIVE: CASE EVENT DATE: 20230317
